FAERS Safety Report 9399215 (Version 1)
Quarter: 2013Q3

REPORT INFORMATION
  Report Type: Spontaneous
  Country: MT (occurrence: None)
  Receive Date: 20130709
  Receipt Date: 20130709
  Transmission Date: 20140515
  Serious: Yes (Other)
  Sender: FDA-Public Use
  Company Number: AUR-APL-2013-05681

PATIENT
  Age: 47 Year
  Sex: Male

DRUGS (1)
  1. LAMIVUDINE [Suspect]
     Indication: ACUTE HEPATITIS B
     Dosage: 1D

REACTIONS (2)
  - Drug resistance [None]
  - Treatment failure [None]
